FAERS Safety Report 7402588-5 (Version None)
Quarter: 2011Q2

REPORT INFORMATION
  Report Type: 
  Country: None (occurrence: None)
  Receive Date: 20110408
  Receipt Date: 20110330
  Transmission Date: 20111010
  Serious: Yes (Hospitalization)
  Sender: FDA-Public Use
  Company Number: NL-MEDIMMUNE-MEDI-0013032

PATIENT
  Sex: Female

DRUGS (4)
  1. SYNAGIS [Suspect]
     Route: 030
     Dates: start: 20101013, end: 20110302
  2. SYNAGIS [Suspect]
     Route: 030
     Dates: start: 20110330, end: 20110330
  3. ANTIBIOTICS [Concomitant]
     Indication: DEHYDRATION
     Dates: start: 20110325, end: 20110327
  4. FLUID NOS [Concomitant]
     Indication: DEHYDRATION
     Dates: start: 20110325, end: 20110327

REACTIONS (2)
  - DEHYDRATION [None]
  - OROPHARYNGEAL BLISTERING [None]
